FAERS Safety Report 4805098-4 (Version None)
Quarter: 2005Q4

REPORT INFORMATION
  Report Type: 
  Country: None (occurrence: None)
  Receive Date: 20051017
  Receipt Date: 20051003
  Transmission Date: 20060501
  Serious: Yes (Death)
  Sender: FDA-Public Use
  Company Number: 05P-122-0311618-00

PATIENT
  Age: 81 Year
  Sex: Male

DRUGS (23)
  1. SIMDAX INJECTION(LEVOSIMENDAN) (LEVOSIMENDAN) [Suspect]
     Indication: CARDIAC FAILURE
     Dosage: SEE IMAGE
     Route: 042
     Dates: start: 20050919, end: 20050919
  2. SIMDAX INJECTION(LEVOSIMENDAN) (LEVOSIMENDAN) [Suspect]
     Indication: CARDIAC OPERATION
     Dosage: SEE IMAGE
     Route: 042
     Dates: start: 20050919, end: 20050919
  3. SIMDAX INJECTION(LEVOSIMENDAN) (LEVOSIMENDAN) [Suspect]
     Indication: CARDIAC FAILURE
     Dosage: SEE IMAGE
     Route: 042
     Dates: start: 20050919, end: 20050919
  4. SIMDAX INJECTION(LEVOSIMENDAN) (LEVOSIMENDAN) [Suspect]
     Indication: CARDIAC OPERATION
     Dosage: SEE IMAGE
     Route: 042
     Dates: start: 20050919, end: 20050919
  5. SIMDAX INJECTION(LEVOSIMENDAN) (LEVOSIMENDAN) [Suspect]
     Indication: CARDIAC FAILURE
     Dosage: SEE IMAGE
     Route: 042
     Dates: start: 20050919, end: 20050919
  6. SIMDAX INJECTION(LEVOSIMENDAN) (LEVOSIMENDAN) [Suspect]
     Indication: CARDIAC OPERATION
     Dosage: SEE IMAGE
     Route: 042
     Dates: start: 20050919, end: 20050919
  7. DIAZEPAM [Concomitant]
  8. FENTANYL [Concomitant]
  9. MIDAZOLAM [Concomitant]
  10. ADRENALIN/NORADRENALIN [Concomitant]
  11. CISATRACURIUM BESILATE [Concomitant]
  12. PROTAMINE SULFATE [Concomitant]
  13. HEPARIN [Concomitant]
  14. PHENYLEPHRINE [Concomitant]
  15. ALBYL-ENTEROSOLUBILE [Concomitant]
  16. DOXAZOSIN MESYLATE [Concomitant]
  17. BISOPROLOL [Concomitant]
  18. FLUTICASONE PROPIONATE [Concomitant]
  19. FUROSEMIDE [Concomitant]
  20. LEVOTHYROXINE SODIUM [Concomitant]
  21. RAMIPRIL [Concomitant]
  22. SIMVASTATIN [Concomitant]
  23. SODIUM NITROPRUSSIDE [Concomitant]

REACTIONS (4)
  - HYPOVOLAEMIA [None]
  - METABOLIC ACIDOSIS [None]
  - OPERATIVE HAEMORRHAGE [None]
  - PULMONARY HAEMORRHAGE [None]
